FAERS Safety Report 4444353-7 (Version None)
Quarter: 2004Q3

REPORT INFORMATION
  Report Type: 
  Country: None (occurrence: None)
  Receive Date: 20040730
  Receipt Date: 20040302
  Transmission Date: 20050211
  Serious: No
  Sender: FDA-Public Use
  Company Number: 04P-163-0251992-00

PATIENT
  Age: 7 Year
  Sex: Female

DRUGS (2)
  1. ULTANE [Suspect]
     Indication: ANAESTHESIA
     Dosage: ONCE INHALATION
     Route: 055
     Dates: start: 20040226, end: 20040226
  2. NITROUS OXIDE [Concomitant]

REACTIONS (2)
  - LARYNGOSPASM [None]
  - LIGHT ANAESTHESIA [None]
